FAERS Safety Report 9931816 (Version 1)
Quarter: 2014Q1

REPORT INFORMATION
  Report Type: Spontaneous
  Country: CN (occurrence: None)
  Receive Date: 20140226
  Receipt Date: 20140226
  Transmission Date: 20141002
  Serious: Yes (Other)
  Sender: FDA-Public Use
  Company Number: SYM-2014-17723

PATIENT
  Sex: Female

DRUGS (3)
  1. FLUOROURACIL (FLUOROURACIL) (FLUOROURACIL) [Suspect]
     Indication: METASTATIC GASTRIC CANCER
     Route: 013
  2. OXALIPLATIN (OXALIPLATIN) (OXALIPLATIN) [Suspect]
     Indication: METASTATIC GASTRIC CANCER
     Route: 013
  3. LEUCOVORIN (FOLINIC ACID) (FOLINIC ACID) [Suspect]
     Indication: METASTATIC GASTRIC CANCER
     Route: 042

REACTIONS (1)
  - Acute myocardial infarction [None]
